FAERS Safety Report 5993453-9 (Version None)
Quarter: 2008Q4

REPORT INFORMATION
  Report Type: 
  Country: None (occurrence: None)
  Receive Date: 20081212
  Receipt Date: 20081201
  Transmission Date: 20090506
  Serious: Yes (Other)
  Sender: FDA-Public Use
  Company Number: PL-JNJFOC-20081200010

PATIENT
  Age: 7 Year
  Sex: Male
  Weight: 18 kg

DRUGS (2)
  1. TOPAMAX [Suspect]
     Dosage: 75 MG + 100 MG DAILY
     Route: 048
  2. TOPAMAX [Suspect]
     Indication: EPILEPSY
     Dosage: 25 MG + 25 MG PER DAY
     Route: 048

REACTIONS (2)
  - CYANOSIS [None]
  - PARTIAL SEIZURES [None]
